FAERS Safety Report 5234772-3 (Version None)
Quarter: 2007Q1

REPORT INFORMATION
  Report Type: 
  Country: None (occurrence: None)
  Receive Date: 20070209
  Receipt Date: 20070129
  Transmission Date: 20070707
  Serious: Yes (Hospitalization, Disabling, Other)
  Sender: FDA-Public Use
  Company Number: US-PFIZER INC-2006126581

PATIENT
  Sex: Female

DRUGS (11)
  1. PREDNISONE [Suspect]
     Indication: RHEUMATOID ARTHRITIS
  2. PREDNISONE [Suspect]
     Indication: VASCULITIS
  3. NEURONTIN [Suspect]
     Indication: NEUROPATHY PERIPHERAL
  4. NEURONTIN [Suspect]
     Indication: RHEUMATOID ARTHRITIS
  5. LYRICA [Suspect]
     Indication: NEUROPATHY PERIPHERAL
  6. ASPIRIN [Concomitant]
  7. PREVACID [Concomitant]
  8. NITROFURANTOIN [Concomitant]
  9. OXYCODONE HCL [Concomitant]
  10. MOTRIN [Concomitant]
  11. ADVIL [Concomitant]

REACTIONS (14)
  - CATARACT [None]
  - CONFUSIONAL STATE [None]
  - CONTUSION [None]
  - CYTOMEGALOVIRUS INFECTION [None]
  - EYELID PTOSIS [None]
  - FALL [None]
  - GAIT DISTURBANCE [None]
  - IMMUNOSUPPRESSION [None]
  - NEUROPATHY PERIPHERAL [None]
  - OSTEOPOROSIS [None]
  - SKIN EXFOLIATION [None]
  - SUBCUTANEOUS ABSCESS [None]
  - VASCULITIS [None]
  - WEIGHT INCREASED [None]
